FAERS Safety Report 12125697 (Version 1)
Quarter: 2016Q1

REPORT INFORMATION
  Report Type: Spontaneous
  Country: FR (occurrence: FR)
  Receive Date: 20160229
  Receipt Date: 20160229
  Transmission Date: 20160526
  Serious: Yes (Other)
  Sender: FDA-Public Use
  Company Number: FR-ROCHE-1717901

PATIENT
  Age: 72 Year
  Sex: Male

DRUGS (1)
  1. ZELBORAF [Suspect]
     Active Substance: VEMURAFENIB
     Indication: METASTATIC MALIGNANT MELANOMA
     Route: 048
     Dates: start: 20131024, end: 20140303

REACTIONS (3)
  - Hyperkeratosis [Recovered/Resolved]
  - Erythrosis [Recovered/Resolved]
  - Palmoplantar keratoderma [Recovered/Resolved]

NARRATIVE: CASE EVENT DATE: 20131127
